FAERS Safety Report 6596562-9 (Version None)
Quarter: 2010Q1

REPORT INFORMATION
  Report Type: 
  Country: None (occurrence: None)
  Receive Date: 20100223
  Receipt Date: 20100208
  Transmission Date: 20100710
  Serious: Yes (Hospitalization)
  Sender: FDA-Public Use
  Company Number: JP-BAYER-200911110BYL

PATIENT
  Age: 20 Year
  Sex: Female
  Weight: 49 kg

DRUGS (8)
  1. BETAFERON [Suspect]
     Indication: MULTIPLE SCLEROSIS
     Dosage: 400-800 IU/DAY
     Route: 058
     Dates: start: 20020902, end: 20021127
  2. METHYCOBAL [Concomitant]
     Dosage: TOTAL DAILY DOSE: 1500 MG
     Route: 048
  3. HOCHU-EKKI-TO [Concomitant]
     Dosage: TOTAL DAILY DOSE: 7.5 G
     Route: 048
     Dates: start: 20020101
  4. IBRUPROFEN [Concomitant]
     Dosage: TOTAL DAILY DOSE: 100 MG
     Route: 048
     Dates: start: 20020401
  5. PREDONINE [Concomitant]
     Dosage: TOTAL DAILY DOSE: 5 MG
     Route: 048
  6. PREDONINE [Concomitant]
     Route: 048
     Dates: start: 20021001
  7. BUFFERIN [Concomitant]
     Route: 048
     Dates: start: 20020929
  8. NEO-MINOPHAGEN C [Concomitant]
     Route: 041
     Dates: start: 20021122

REACTIONS (1)
  - CEREBRAL DISORDER [None]
